FAERS Safety Report 6059401-0 (Version None)
Quarter: 2009Q1

REPORT INFORMATION
  Report Type: 
  Country: None (occurrence: None)
  Receive Date: 20090130
  Receipt Date: 20090120
  Transmission Date: 20090719
  Serious: Yes (Other)
  Sender: FDA-Public Use
  Company Number: IT-AMGEN-UK328173

PATIENT
  Sex: Male
  Weight: 84 kg

DRUGS (6)
  1. PANITUMUMAB [Suspect]
     Indication: COLORECTAL CANCER
     Route: 042
     Dates: start: 20080617
  2. ASPIRIN [Concomitant]
     Route: 048
     Dates: start: 20080301
  3. PLAVIX [Concomitant]
     Route: 048
     Dates: start: 20080301
  4. TRIATEC [Concomitant]
     Route: 048
     Dates: start: 20080301
  5. NORVASC [Concomitant]
     Route: 048
     Dates: start: 20080301
  6. HALCION [Concomitant]
     Route: 048
     Dates: start: 20080301

REACTIONS (1)
  - FOLLICULITIS [None]
